FAERS Safety Report 22274276 (Version 2)
Quarter: 2024Q2

REPORT INFORMATION
  Report Type: Spontaneous
  Country: US (occurrence: US)
  Receive Date: 20230502
  Receipt Date: 20240503
  Transmission Date: 20240715
  Serious: Yes (Other)
  Sender: FDA-Public Use
  Company Number: US-AMNEAL PHARMACEUTICALS-2022-AMRX-03138

PATIENT
  Age: 1 Year
  Sex: Female
  Weight: 9.161 kg

DRUGS (2)
  1. VIGABATRIN [Suspect]
     Active Substance: VIGABATRIN
     Indication: Product used for unknown indication
     Dosage: 500 MILLIGRAM (0.9 ML), 2 /DAY
     Route: 048
  2. ZONISAMIDE [Concomitant]
     Active Substance: ZONISAMIDE
     Indication: Product used for unknown indication
     Dosage: 25 MILLIGRAM
     Route: 048

REACTIONS (4)
  - Seizure [Unknown]
  - Hepatic enzyme abnormal [Unknown]
  - Dyskinesia [Unknown]
  - Anaemia [Unknown]

NARRATIVE: CASE EVENT DATE: 20230401
